FAERS Safety Report 18741301 (Version 6)
Quarter: 2022Q2

REPORT INFORMATION
  Report Type: Spontaneous
  Country: US (occurrence: US)
  Receive Date: 20210114
  Receipt Date: 20220628
  Transmission Date: 20220720
  Serious: Yes (Hospitalization, Other)
  Sender: FDA-Public Use
  Company Number: US-PFIZER INC-2021020987

PATIENT
  Age: 65 Year
  Sex: Female
  Weight: 58.06 kg

DRUGS (2)
  1. PREMARIN [Suspect]
     Active Substance: ESTROGENS, CONJUGATED
     Indication: Hot flush
     Dosage: 0.3 MG, 1X/DAY(ONCE A DAY)
     Route: 048
  2. PREMARIN [Suspect]
     Active Substance: ESTROGENS, CONJUGATED
     Indication: Dizziness

REACTIONS (11)
  - Feeling hot [Unknown]
  - Malaise [Unknown]
  - Cholecystectomy [Unknown]
  - Feeling abnormal [Unknown]
  - Illness [Unknown]
  - Insomnia [Unknown]
  - Poor quality sleep [Unknown]
  - Night sweats [Unknown]
  - Asthma [Unknown]
  - Dyspnoea [Unknown]
  - Fatigue [Unknown]

NARRATIVE: CASE EVENT DATE: 20200101
